FAERS Safety Report 20553363 (Version 1)
Quarter: 2022Q1

REPORT INFORMATION
  Report Type: Spontaneous
  Country: US (occurrence: None)
  Receive Date: 20220304
  Receipt Date: 20220304
  Transmission Date: 20220423
  Serious: No
  Sender: FDA-Public Use
  Company Number: None

PATIENT
  Age: 27 Year
  Sex: Female
  Weight: 109 kg

DRUGS (3)
  1. NEOSTIGMINE METHYLSULFATE [Suspect]
     Active Substance: NEOSTIGMINE METHYLSULFATE
     Indication: Umbilical hernia repair
     Dosage: FREQUENCY : ONCE;?
     Route: 040
     Dates: start: 20220302, end: 20220302
  2. ROCURONIUM [Concomitant]
     Dates: start: 20220302, end: 20220302
  3. SUGAMMADEX [Concomitant]
     Dates: start: 20220302, end: 20220302

REACTIONS (4)
  - Muscle fatigue [None]
  - Drug ineffective [None]
  - Product quality issue [None]
  - Neuromuscular block prolonged [None]

NARRATIVE: CASE EVENT DATE: 20220302
